FAERS Safety Report 5073010-1 (Version None)
Quarter: 2006Q3

REPORT INFORMATION
  Report Type: 
  Country: None (occurrence: None)
  Receive Date: 20060802
  Receipt Date: 20060721
  Transmission Date: 20061208
  Serious: Yes (Life-Threatening, Hospitalization, Disabling)
  Sender: FDA-Public Use
  Company Number: 2006090575

PATIENT
  Age: 55 Year
  Sex: Male

DRUGS (4)
  1. ZYVOX [Suspect]
     Indication: STAPHYLOCOCCAL SEPSIS
     Dosage: 1200 MG, INTRAVENOUS
     Route: 042
     Dates: start: 20060712, end: 20060717
  2. FINIBAX          (DORIPENEM) [Suspect]
     Indication: PSEUDOMONAS INFECTION
     Dosage: INTRAVENOUS
     Route: 042
     Dates: start: 20060712, end: 20060717
  3. REMINARON              (GABEXATE MESILATE) [Concomitant]
  4. VENOGLOBULIN-I [Concomitant]

REACTIONS (4)
  - BONE MARROW FAILURE [None]
  - CHILLS [None]
  - ERYTHEMA [None]
  - PYREXIA [None]
